FAERS Safety Report 16908091 (Version 1)
Quarter: 2019Q4

REPORT INFORMATION
  Report Type: Spontaneous
  Country: US (occurrence: US)
  Receive Date: 20190820
  Receipt Date: 20190820
  Transmission Date: 20200122
  Serious: No
  Sender: FDA-Public Use
  Company Number: None

PATIENT

DRUGS (2)
  1. LIDOCAINE HYDROCHLORIDE. [Suspect]
     Active Substance: LIDOCAINE HYDROCHLORIDE
  2. PROPOFOL. [Suspect]
     Active Substance: PROPOFOL

REACTIONS (3)
  - Product selection error [None]
  - Product storage error [None]
  - Product label confusion [None]
